FAERS Safety Report 9441892 (Version 1)
Quarter: 2013Q3

REPORT INFORMATION
  Report Type: Spontaneous
  Country: DE (occurrence: DE)
  Receive Date: 20130806
  Receipt Date: 20130806
  Transmission Date: 20140515
  Serious: Yes (Other)
  Sender: FDA-Public Use
  Company Number: DE-JNJFOC-20130717333

PATIENT
  Sex: Female
  Weight: 130 kg

DRUGS (2)
  1. HALDOL [Suspect]
     Indication: PRODUCT USED FOR UNKNOWN INDICATION
     Dosage: IT WAS UNKNOWN IF COMPLETE DOSAGE WAS TAKEN.
     Route: 048
  2. OXYCARBAZEPINE [Suspect]
     Indication: PRODUCT USED FOR UNKNOWN INDICATION
     Dosage: 6 TABLETS??IT WAS UNKNOWN IF COMPLETE DOSAGE WAS TAKEN.
     Route: 048

REACTIONS (1)
  - Suicide attempt [Unknown]
